FAERS Safety Report 8514440-2 (Version None)
Quarter: 2012Q3

REPORT INFORMATION
  Report Type: 
  Country: None (occurrence: None)
  Receive Date: 20120717
  Receipt Date: 20120709
  Transmission Date: 20120928
  Serious: Yes (Hospitalization, Other)
  Sender: FDA-Public Use
  Company Number: US-US-EMD SERONO, INC.-7145055

PATIENT
  Sex: Female
  Weight: 98 kg

DRUGS (3)
  1. OMEPRAZOLE [Concomitant]
     Indication: GASTROOESOPHAGEAL REFLUX DISEASE
  2. DIAZEPAM [Concomitant]
     Indication: ANXIETY
  3. REBIF [Suspect]
     Indication: MULTIPLE SCLEROSIS
     Route: 058
     Dates: start: 20090410

REACTIONS (7)
  - ACTIVITIES OF DAILY LIVING IMPAIRED [None]
  - NEPHROLITHIASIS [None]
  - INFLUENZA LIKE ILLNESS [None]
  - FALL [None]
  - MULTIPLE SCLEROSIS RELAPSE [None]
  - LIMB INJURY [None]
  - SKIN EROSION [None]
